FAERS Safety Report 14778264 (Version 3)
Quarter: 2018Q2

REPORT INFORMATION
  Report Type: Spontaneous
  Country: US (occurrence: US)
  Receive Date: 20180419
  Receipt Date: 20180511
  Transmission Date: 20180711
  Serious: No
  Sender: FDA-Public Use
  Company Number: US-PFIZER INC-2018158756

PATIENT
  Age: 71 Year
  Sex: Male

DRUGS (5)
  1. ALTACE [Concomitant]
     Active Substance: RAMIPRIL
     Indication: HYPERTENSION
     Dosage: 10 MG, 1X/DAY(QD)
     Dates: start: 2003
  2. CIALIS [Concomitant]
     Active Substance: TADALAFIL
     Indication: BENIGN PROSTATIC HYPERPLASIA
     Dosage: 5 MG, 1X/DAY(QD)
     Dates: start: 2016
  3. CENTRUM [Concomitant]
     Active Substance: VITAMINS
     Dosage: UNK, 1X/DAY (QD)
     Dates: start: 1990
  4. PROCARDIA XL [Suspect]
     Active Substance: NIFEDIPINE
     Indication: HYPERTENSION
     Dosage: 30 MG, 1X/DAY(QD)
     Dates: start: 2003
  5. FISH OIL [Concomitant]
     Active Substance: FISH OIL
     Dosage: 1200 MG, 1X/DAY (QD)
     Dates: start: 1995

REACTIONS (1)
  - Frequent bowel movements [Recovered/Resolved]
